FAERS Safety Report 7224930-0 (Version None)
Quarter: 2011Q1

REPORT INFORMATION
  Report Type: 
  Country: None (occurrence: None)
  Receive Date: 20110103
  Receipt Date: 20101221
  Transmission Date: 20110831
  Serious: Yes (Hospitalization, Congenital Anomaly, Other)
  Sender: FDA-Public Use
  Company Number: 2009SP021569

PATIENT
  Sex: Female
  Weight: 1.21 kg

DRUGS (3)
  1. PEGINTERFERON ALFA-2B [Suspect]
     Indication: DRUG EXPOSURE DURING PREGNANCY
     Dates: start: 20080910, end: 20090527
  2. EBASTINE [Concomitant]
  3. RIBAVIRIN [Suspect]
     Indication: DRUG EXPOSURE DURING PREGNANCY
     Dates: start: 20080910, end: 20090601

REACTIONS (7)
  - PREMATURE BABY [None]
  - PATERNAL DRUGS AFFECTING FOETUS [None]
  - ABORTION THREATENED [None]
  - CAESAREAN SECTION [None]
  - SMALL FOR DATES BABY [None]
  - MENINGOCELE [None]
  - CEREBRAL VENTRICLE DILATATION [None]
